FAERS Safety Report 5997547-3 (Version None)
Quarter: 2008Q4

REPORT INFORMATION
  Report Type: 
  Country: None (occurrence: None)
  Receive Date: 20081212
  Receipt Date: 20081114
  Transmission Date: 20090506
  Serious: No
  Sender: FDA-Public Use
  Company Number: US-ABBOTT-08P-163-0487975-00

PATIENT
  Sex: Male
  Weight: 61.744 kg

DRUGS (5)
  1. HUMIRA [Suspect]
     Indication: CROHN'S DISEASE
     Dosage: 160 MG - 4 PENS INITIAL CROHN'S DOSAGE; WILL BE DOING 40MG EOW
     Route: 058
     Dates: start: 20081114
  2. FOLIC ACID [Concomitant]
     Indication: DRUG USE FOR UNKNOWN INDICATION
  3. AZATHIOPRINE [Concomitant]
     Indication: CROHN'S DISEASE
     Dosage: 125MG QD
  4. PREDNISONE TAB [Concomitant]
     Indication: DRUG USE FOR UNKNOWN INDICATION
     Dosage: 40MG QD
  5. MESALAMINE [Concomitant]
     Indication: CROHN'S DISEASE
     Dosage: 500MG - 2 TABS TID

REACTIONS (1)
  - INCORRECT DOSE ADMINISTERED [None]
